FAERS Safety Report 5063882-9 (Version None)
Quarter: 2006Q3

REPORT INFORMATION
  Report Type: 
  Country: None (occurrence: None)
  Receive Date: 20060727
  Receipt Date: 20060717
  Transmission Date: 20061208
  Serious: Yes (Other)
  Sender: FDA-Public Use
  Company Number: TW-ABBOTT-06P-153-0338407-00

PATIENT
  Age: 33 Year
  Sex: Male

DRUGS (2)
  1. DEPAKENE [Suspect]
     Indication: EPILEPSY
     Route: 048
     Dates: end: 20050101
  2. DEPAKENE [Suspect]
     Route: 048
     Dates: start: 20050101, end: 20060601

REACTIONS (4)
  - CONVULSION [None]
  - DRUG LEVEL INCREASED [None]
  - HYPERAMMONAEMIA [None]
  - TREMOR [None]
